FAERS Safety Report 12326171 (Version 1)
Quarter: 2016Q2

REPORT INFORMATION
  Report Type: Report from Study
  Country: GB (occurrence: GB)
  Receive Date: 20160503
  Receipt Date: 20160503
  Transmission Date: 20160815
  Serious: Yes (Hospitalization)
  Sender: FDA-Public Use
  Company Number: GB-ACCORD-040057

PATIENT
  Age: 16 Year
  Sex: Male

DRUGS (2)
  1. TACROLIMUS. [Suspect]
     Active Substance: TACROLIMUS
     Indication: RENAL TRANSPLANT
     Dosage: MOST RECENT DOSE ON 10-MAR-2016
     Route: 048
     Dates: start: 20150514
  2. MYCOPHENOLIC ACID. [Suspect]
     Active Substance: MYCOPHENOLIC ACID
     Indication: RENAL TRANSPLANT
     Dosage: MOST RECENT DOSE ON 10-MAR-2016
     Route: 048
     Dates: start: 20150514

REACTIONS (2)
  - Kidney transplant rejection [Not Recovered/Not Resolved]
  - Pyelonephritis acute [Not Recovered/Not Resolved]

NARRATIVE: CASE EVENT DATE: 20160310
